FAERS Safety Report 8150346-9 (Version None)
Quarter: 2012Q1

REPORT INFORMATION
  Report Type: 
  Country: None (occurrence: None)
  Receive Date: 20120220
  Receipt Date: 20120209
  Transmission Date: 20120608
  Serious: Yes (Other)
  Sender: FDA-Public Use
  Company Number: MX-PFIZER INC-2012042048

PATIENT
  Age: 80 Year
  Sex: Male

DRUGS (5)
  1. REPAGLINIDE [Concomitant]
     Indication: TYPE 2 DIABETES MELLITUS
     Dosage: 0.5 MG, 1X/DAY
  2. MULTIVITAMIN [Concomitant]
     Indication: RETINOPATHY
     Dosage: UNK
  3. JANUMET [Concomitant]
     Indication: TYPE 2 DIABETES MELLITUS
     Dosage: 1 TABLET OF 50 MG + 8500 MG (EVERY 24 HOURS)
  4. AMIODARONE HCL [Suspect]
     Indication: ATRIAL FIBRILLATION
     Dosage: UNK
     Route: 048
     Dates: start: 20090101, end: 20100101
  5. MULTIVITAMIN [Concomitant]
     Indication: MYOPIA

REACTIONS (1)
  - EYE DISORDER [None]
